FAERS Safety Report 14818052 (Version 2)
Quarter: 2018Q2

REPORT INFORMATION
  Report Type: Spontaneous
  Country: US (occurrence: US)
  Receive Date: 20180427
  Receipt Date: 20180517
  Transmission Date: 20180711
  Serious: Yes (Other)
  Sender: FDA-Public Use
  Company Number: US-009507513-1804USA010263

PATIENT
  Age: 19 Year
  Sex: Male

DRUGS (1)
  1. TEMODAR [Suspect]
     Active Substance: TEMOZOLOMIDE
     Indication: ANAPLASTIC ASTROCYTOMA
     Dosage: 200 MG/M2, QD (ON DAY 1-5 MONTHLY X 18 MONTHS)
     Dates: start: 201501, end: 201611

REACTIONS (1)
  - Glioma [Unknown]

NARRATIVE: CASE EVENT DATE: 2018
